FAERS Safety Report 7730146-1 (Version None)
Quarter: 2011Q3

REPORT INFORMATION
  Report Type: 
  Country: None (occurrence: None)
  Receive Date: 20110906
  Receipt Date: 20110829
  Transmission Date: 20111222
  Serious: Yes (Death, Other)
  Sender: FDA-Public Use
  Company Number: DE-ROCHE-799341

PATIENT

DRUGS (3)
  1. CAPECITABINE [Suspect]
     Indication: GASTRIC CANCER
     Dosage: COHORT 1-1000 MG/M2 AND COHORT II-800 MG/M2-ON DAY 1-14, EVERY 3 WEEKS.
     Route: 048
  2. DOCETAXEL [Suspect]
     Indication: GASTRIC CANCER
     Dosage: COHORT I: DOCETAXEL 75 MG/M2, COHORT II: DOCETAXEL 60 MG/M2
     Route: 042
  3. DEXAMETHASONE [Concomitant]
     Route: 048

REACTIONS (17)
  - ARRHYTHMIA [None]
  - FLUID RETENTION [None]
  - DIARRHOEA [None]
  - LEUKOPENIA [None]
  - PARAESTHESIA [None]
  - VOMITING [None]
  - NEUTROPENIA [None]
  - PYREXIA [None]
  - PULMONARY EMBOLISM [None]
  - FEBRILE NEUTROPENIA [None]
  - ANAEMIA [None]
  - DIZZINESS [None]
  - THROMBOSIS [None]
  - STOMATITIS [None]
  - PALMAR-PLANTAR ERYTHRODYSAESTHESIA SYNDROME [None]
  - NAUSEA [None]
  - ASTHENIA [None]
